FAERS Safety Report 8889581 (Version 2)
Quarter: 2013Q4

REPORT INFORMATION
  Report Type: Spontaneous
  Country: JP (occurrence: JP)
  Receive Date: 20121107
  Receipt Date: 20131211
  Transmission Date: 20140711
  Serious: Yes (Other)
  Sender: FDA-Public Use
  Company Number: PHHY2012JP100438

PATIENT
  Age: 51 Year
  Sex: Female

DRUGS (5)
  1. NEORAL [Suspect]
     Indication: GRAFT VERSUS HOST DISEASE
     Route: 048
     Dates: start: 2001
  2. NEORAL [Suspect]
     Indication: OBLITERATIVE BRONCHIOLITIS
  3. NEORAL [Suspect]
     Indication: STEM CELL TRANSPLANT
  4. METHOTREXATE [Suspect]
     Indication: GRAFT VERSUS HOST DISEASE
     Dates: start: 2001
  5. SANDIMMUN [Concomitant]
     Indication: STEM CELL TRANSPLANT
     Dates: start: 2001

REACTIONS (16)
  - Obliterative bronchiolitis [Recovering/Resolving]
  - Oral lichen planus [Recovering/Resolving]
  - Hepatocellular carcinoma [Recovering/Resolving]
  - Lymphocytic infiltration [Unknown]
  - Portal fibrosis [Unknown]
  - Hepatic cirrhosis [Recovering/Resolving]
  - Hepatic atrophy [Unknown]
  - Chronic graft versus host disease in liver [Recovering/Resolving]
  - Acute graft versus host disease in skin [Recovering/Resolving]
  - Acute graft versus host disease in intestine [Recovering/Resolving]
  - Acute graft versus host disease in liver [Recovering/Resolving]
  - Varices oesophageal [Unknown]
  - Ascites [Unknown]
  - Child-Pugh-Turcotte score increased [Unknown]
  - Graft versus host disease in lung [Recovering/Resolving]
  - Chronic graft versus host disease [Recovering/Resolving]
